FAERS Safety Report 5458148-9 (Version None)
Quarter: 2007Q3

REPORT INFORMATION
  Report Type: 
  Country: None (occurrence: None)
  Receive Date: 20070917
  Receipt Date: 20070905
  Transmission Date: 20080115
  Serious: No
  Sender: FDA-Public Use
  Company Number: 2007-164153-NL

PATIENT
  Age: 29 Year
  Sex: Female

DRUGS (1)
  1. MARVELON [Suspect]
     Dosage: 1 DF ORAL
     Route: 048

REACTIONS (5)
  - DYSARTHRIA [None]
  - DYSPHASIA [None]
  - PARAESTHESIA [None]
  - PARESIS [None]
  - TRANSIENT ISCHAEMIC ATTACK [None]
